FAERS Safety Report 22367461 (Version 1)
Quarter: 2023Q2

REPORT INFORMATION
  Report Type: Report from Study
  Country: US (occurrence: US)
  Receive Date: 20230525
  Receipt Date: 20230525
  Transmission Date: 20230721
  Serious: Yes (Hospitalization, Other)
  Sender: FDA-Public Use
  Company Number: US-ABBVIE-5178150

PATIENT
  Age: 74 Year
  Sex: Female

DRUGS (1)
  1. HUMIRA [Suspect]
     Active Substance: ADALIMUMAB
     Indication: Rheumatoid arthritis
     Dosage: CITRATE FREE
     Route: 058
     Dates: start: 20220517, end: 20230407

REACTIONS (6)
  - Hernia [Unknown]
  - Weight decreased [Unknown]
  - Fibromyalgia [Unknown]
  - Limb discomfort [Unknown]
  - Escherichia sepsis [Unknown]
  - Asthenia [Unknown]

NARRATIVE: CASE EVENT DATE: 20230407
